FAERS Safety Report 6126367-4 (Version None)
Quarter: 2009Q1

REPORT INFORMATION
  Report Type: 
  Country: None (occurrence: None)
  Receive Date: 20090318
  Receipt Date: 20090302
  Transmission Date: 20090719
  Serious: Yes (Other)
  Sender: FDA-Public Use
  Company Number: 2009S1003536

PATIENT
  Age: 33 Year
  Sex: Female

DRUGS (12)
  1. AZATHIOPRINE [Suspect]
     Indication: IDIOPATHIC THROMBOCYTOPENIC PURPURA
  2. DALTEPARIN SODIUM [Suspect]
     Indication: ANTIPHOSPHOLIPID SYNDROME
  3. ASPIRIN [Suspect]
     Indication: ANTIPHOSPHOLIPID SYNDROME
  4. ISOFLURANE [Suspect]
     Indication: DRUG USE FOR UNKNOWN INDICATION
  5. ALFENTANIL [Suspect]
     Indication: DRUG USE FOR UNKNOWN INDICATION
  6. IMMUNE GLOBULIN (HUMAN) [Suspect]
     Indication: DRUG USE FOR UNKNOWN INDICATION
  7. PROTAMINE SULFATE [Suspect]
     Indication: DRUG USE FOR UNKNOWN INDICATION
  8. SODIUM CITRATE [Suspect]
     Indication: DRUG USE FOR UNKNOWN INDICATION
  9. SUXAMETHONIUM (SUXAMETHONIUM) [Suspect]
     Indication: DRUG USE FOR UNKNOWN INDICATION
  10. THIOPENTAL SODIUM [Suspect]
     Indication: DRUG USE FOR UNKNOWN INDICATION
  11. METOCLOPRAMIDE [Concomitant]
  12. RANITIDINE [Concomitant]

REACTIONS (19)
  - ACTIVATED PARTIAL THROMBOPLASTIN TIME PROLONGED [None]
  - APHASIA [None]
  - CAESAREAN SECTION [None]
  - CONDITION AGGRAVATED [None]
  - DRUG EXPOSURE DURING PREGNANCY [None]
  - DYSPHAGIA [None]
  - DYSPHASIA [None]
  - FALL [None]
  - FOETAL MALPRESENTATION [None]
  - HEMIPLEGIA [None]
  - HYPOCOAGULABLE STATE [None]
  - HYPOTONIA [None]
  - IDIOPATHIC THROMBOCYTOPENIC PURPURA [None]
  - ISCHAEMIC STROKE [None]
  - MOTOR DYSFUNCTION [None]
  - NO THERAPEUTIC RESPONSE [None]
  - PREMATURE LABOUR [None]
  - PREMATURE RUPTURE OF MEMBRANES [None]
  - THROMBOCYTOPENIA [None]
